FAERS Safety Report 24382396 (Version 1)
Quarter: 2024Q4

REPORT INFORMATION
  Report Type: Spontaneous
  Country: GB (occurrence: GB)
  Receive Date: 20241001
  Receipt Date: 20241001
  Transmission Date: 20250115
  Serious: Yes (Hospitalization, Other)
  Sender: AUROBINDO
  Company Number: GB-SANDOZ-SDZ2024GB071185

PATIENT
  Sex: Female

DRUGS (3)
  1. APIXABAN [Suspect]
     Active Substance: APIXABAN
     Indication: Cerebrovascular accident
     Dosage: UNK
     Route: 065
     Dates: start: 202305
  2. APIXABAN [Suspect]
     Active Substance: APIXABAN
     Indication: Pulmonary embolism
     Dosage: 5 MILLIGRAM, ONCE A DAY, 2.5 MG, BID
     Route: 065
     Dates: start: 202407
  3. APIXABAN [Suspect]
     Active Substance: APIXABAN
     Dosage: 5 MILLIGRAM
     Route: 065
     Dates: start: 202407

REACTIONS (11)
  - Cerebrovascular accident [Unknown]
  - Dyspnoea [Not Recovered/Not Resolved]
  - Visual impairment [Unknown]
  - Photopsia [Unknown]
  - Hypersensitivity [Unknown]
  - Rash [Unknown]
  - Rash pruritic [Unknown]
  - Contusion [Recovering/Resolving]
  - Haemorrhage [Recovering/Resolving]
  - Headache [Recovered/Resolved]
  - Therapeutic product effect incomplete [Unknown]
